FAERS Safety Report 11473710 (Version 1)
Quarter: 2015Q3

REPORT INFORMATION
  Report Type: Spontaneous
  Country: US (occurrence: None)
  Receive Date: 20150902
  Receipt Date: 20150902
  Transmission Date: 20151125
  Serious: Yes (Hospitalization)
  Sender: FDA-Public Use
  Company Number: A-NJ2014-103647

PATIENT
  Age: 63 Year
  Sex: Female

DRUGS (4)
  1. VELETRI [Suspect]
     Active Substance: EPOPROSTENOL
     Indication: PULMONARY ARTERIAL HYPERTENSION
     Dosage: 12 NG/KG, UNK, INTRAVENOUS
     Route: 042
  2. REVATIO (SILDENAFIL CITRATE) [Concomitant]
  3. IMODIUM [Suspect]
     Active Substance: LOPERAMIDE HYDROCHLORIDE
     Indication: DIARRHOEA
  4. ASPIRIN (ACETYLSALICYLIC ACID) [Concomitant]
     Active Substance: ASPIRIN

REACTIONS (11)
  - Urticaria [None]
  - Dyspnoea [None]
  - Oedema peripheral [None]
  - Vomiting [None]
  - Rash [None]
  - Constipation [None]
  - Pain in jaw [None]
  - Catheter site inflammation [None]
  - Diarrhoea [None]
  - Herpes zoster [None]
  - Nausea [None]
